FAERS Safety Report 21447600 (Version 13)
Quarter: 2025Q2

REPORT INFORMATION
  Report Type: Spontaneous
  Country: US (occurrence: US)
  Receive Date: 20221012
  Receipt Date: 20250423
  Transmission Date: 20250716
  Serious: Yes (Hospitalization, Disabling)
  Sender: PFIZER
  Company Number: US-PFIZER INC-202200804890

PATIENT
  Age: 65 Year
  Sex: Female
  Weight: 77.56 kg

DRUGS (1)
  1. PREMARIN [Suspect]
     Active Substance: ESTROGENS, CONJUGATED
     Indication: Dyspareunia
     Route: 067

REACTIONS (10)
  - Wrist fracture [Unknown]
  - Cardiac disorder [Unknown]
  - Tooth extraction [Unknown]
  - Fall [Recovered/Resolved]
  - Pain [Unknown]
  - Limb injury [Unknown]
  - Sciatic nerve injury [Unknown]
  - Back disorder [Unknown]
  - Migraine [Not Recovered/Not Resolved]
  - Off label use [Unknown]

NARRATIVE: CASE EVENT DATE: 20230601
